FAERS Safety Report 9278737 (Version 1)
Quarter: 2013Q2

REPORT INFORMATION
  Report Type: Report from Study
  Country: US (occurrence: US)
  Receive Date: 20130508
  Receipt Date: 20130508
  Transmission Date: 20140414
  Serious: Yes (Other)
  Sender: FDA-Public Use
  Company Number: US-BAYER-2013-056534

PATIENT
  Age: 42 Year
  Sex: Male

DRUGS (1)
  1. STIVARGA [Suspect]
     Indication: RECTAL CANCER
     Dosage: DAILY DOSE 160 MG
     Route: 048
     Dates: start: 20130208

REACTIONS (4)
  - Palmar-plantar erythrodysaesthesia syndrome [Not Recovered/Not Resolved]
  - Oedema peripheral [Not Recovered/Not Resolved]
  - Diarrhoea [None]
  - Dehydration [Not Recovered/Not Resolved]
